FAERS Safety Report 12989235 (Version 2)
Quarter: 2016Q4

REPORT INFORMATION
  Report Type: Report from Study
  Country: CA (occurrence: CA)
  Receive Date: 20161201
  Receipt Date: 20161205
  Transmission Date: 20170207
  Serious: Yes (Hospitalization, Other)
  Sender: FDA-Public Use
  Company Number: CA-ROCHE-1862376

PATIENT
  Age: 66 Year
  Sex: Male

DRUGS (11)
  1. VENLAFAXINE [Concomitant]
     Active Substance: VENLAFAXINE HYDROCHLORIDE
     Route: 065
  2. SALBUTAMOL [Concomitant]
     Active Substance: ALBUTEROL
     Dosage: 2 PUFFS
     Route: 050
  3. VENLAFAXINE [Concomitant]
     Active Substance: VENLAFAXINE HYDROCHLORIDE
     Route: 065
  4. ESBRIET [Suspect]
     Active Substance: PIRFENIDONE
     Indication: IDIOPATHIC PULMONARY FIBROSIS
     Route: 048
     Dates: start: 20130312
  5. VASTATIN [Concomitant]
     Active Substance: SIMVASTATIN
     Route: 065
  6. TRAZODONE [Concomitant]
     Active Substance: TRAZODONE HYDROCHLORIDE
     Dosage: 1 TAB HS
     Route: 065
  7. HYDROMORPHONE [Concomitant]
     Active Substance: HYDROMORPHONE
     Route: 065
  8. OMEPRAZOLE. [Concomitant]
     Active Substance: OMEPRAZOLE
     Dosage: HS
     Route: 065
  9. BACLOFEN. [Concomitant]
     Active Substance: BACLOFEN
     Route: 065
  10. TERAZOSIN [Concomitant]
     Active Substance: TERAZOSIN\TERAZOSIN HYDROCHLORIDE
     Dosage: HS
     Route: 065
  11. ASA [Concomitant]
     Active Substance: ASPIRIN
     Route: 065

REACTIONS (8)
  - Pneumonia [Recovered/Resolved]
  - Pulmonary arterial hypertension [Unknown]
  - Arteriosclerosis coronary artery [Unknown]
  - Pneumothorax [Recovered/Resolved]
  - Hepatic cyst [Not Recovered/Not Resolved]
  - Rib fracture [Unknown]
  - Oxygen saturation decreased [Not Recovered/Not Resolved]
  - Pulmonary function test decreased [Not Recovered/Not Resolved]

NARRATIVE: CASE EVENT DATE: 20130325
